FAERS Safety Report 25311950 (Version 1)
Quarter: 2025Q2

REPORT INFORMATION
  Report Type: Spontaneous
  Country: US (occurrence: US)
  Receive Date: 20250514
  Receipt Date: 20250514
  Transmission Date: 20250716
  Serious: No
  Sender: BAUSCH AND LOMB
  Company Number: US-BAUSCHBL-2025BNL008165

PATIENT
  Age: 76 Year
  Sex: Male

DRUGS (3)
  1. XIIDRA [Suspect]
     Active Substance: LIFITEGRAST
     Indication: Dry eye
     Route: 047
     Dates: start: 20250503, end: 20250503
  2. IVIZIA [Concomitant]
     Active Substance: POVIDONE
     Indication: Product used for unknown indication
     Route: 065
  3. REFRESH CLASSIC [Concomitant]
     Active Substance: POLYVINYL ALCOHOL\POVIDONE
     Indication: Product used for unknown indication
     Route: 065

REACTIONS (5)
  - Eye irritation [Unknown]
  - Vision blurred [Unknown]
  - Drug intolerance [Unknown]
  - Eye pain [Unknown]
  - Headache [Unknown]

NARRATIVE: CASE EVENT DATE: 20250501
